FAERS Safety Report 21089285 (Version 1)
Quarter: 2022Q3

REPORT INFORMATION
  Report Type: Report from Study
  Country: US (occurrence: US)
  Receive Date: 20220715
  Receipt Date: 20220715
  Transmission Date: 20221026
  Serious: Yes (Hospitalization, Other)
  Sender: FDA-Public Use
  Company Number: US-KOREA IPSEN Pharma-2022-20061

PATIENT
  Age: 59 Year
  Sex: Female

DRUGS (2)
  1. SOMATULINE DEPOT [Suspect]
     Active Substance: LANREOTIDE ACETATE
     Indication: Carcinoid tumour of the small bowel
     Route: 058
     Dates: start: 201911
  2. SOMATULINE DEPOT [Suspect]
     Active Substance: LANREOTIDE ACETATE
     Indication: Carcinoid tumour of the liver

REACTIONS (7)
  - COVID-19 [Unknown]
  - Diabetes mellitus [Unknown]
  - Eczema [Unknown]
  - Hypoaesthesia [Unknown]
  - Hypertension [Unknown]
  - Epistaxis [Unknown]
  - Injection site mass [Unknown]

NARRATIVE: CASE EVENT DATE: 20210101
